FAERS Safety Report 23085699 (Version 1)
Quarter: 2023Q4

REPORT INFORMATION
  Report Type: Spontaneous
  Country: US (occurrence: US)
  Receive Date: 20231019
  Receipt Date: 20231019
  Transmission Date: 20240109
  Serious: No
  Sender: FDA-Public Use
  Company Number: US-BRISTOL-MYERS SQUIBB COMPANY-2023-147810

PATIENT
  Age: 75 Year
  Sex: Female
  Weight: 52.16 kg

DRUGS (1)
  1. REVLIMID [Suspect]
     Active Substance: LENALIDOMIDE
     Indication: Plasma cell myeloma
     Dosage: FREQUENCY: 3WKSON, 1WKOFF.
     Route: 048

REACTIONS (5)
  - Fatigue [Unknown]
  - Constipation [Recovered/Resolved]
  - Nausea [Unknown]
  - Muscle spasms [Unknown]
  - Full blood count abnormal [Unknown]
